FAERS Safety Report 10034260 (Version 1)
Quarter: 2014Q1

REPORT INFORMATION
  Report Type: Spontaneous
  Country: US (occurrence: None)
  Receive Date: 20140324
  Receipt Date: 20140324
  Transmission Date: 20141002
  Serious: Yes (Disabling)
  Sender: FDA-Public Use
  Company Number: None

PATIENT
  Age: 34 Year
  Sex: Male
  Weight: 80.74 kg

DRUGS (1)
  1. FINASTERIDE [Suspect]
     Indication: ALOPECIA
     Route: 048
     Dates: start: 20090901, end: 20110301

REACTIONS (8)
  - Dysarthria [None]
  - Fatigue [None]
  - Dry skin [None]
  - Blindness [None]
  - Depression [None]
  - Cognitive disorder [None]
  - Sexual dysfunction [None]
  - Suicidal ideation [None]
